FAERS Safety Report 18493386 (Version 17)
Quarter: 2025Q3

REPORT INFORMATION
  Report Type: Report from Study
  Country: US (occurrence: US)
  Receive Date: 20201112
  Receipt Date: 20250804
  Transmission Date: 20251021
  Serious: Yes (Hospitalization, Other)
  Sender: TAKEDA
  Company Number: US-TAKEDA-2020TUS045658

PATIENT
  Sex: Female
  Weight: 74 kg

DRUGS (42)
  1. HUMAN IMMUNOGLOBULIN G\HYALURONIDASE RECOMBINANT HUMAN [Suspect]
     Active Substance: HUMAN IMMUNOGLOBULIN G\HYALURONIDASE (HUMAN RECOMBINANT)
     Indication: Immunodeficiency common variable
     Dosage: 30 GRAM, Q4WEEKS
     Dates: start: 20200824
  2. HUMAN IMMUNOGLOBULIN G\HYALURONIDASE RECOMBINANT HUMAN [Suspect]
     Active Substance: HUMAN IMMUNOGLOBULIN G\HYALURONIDASE (HUMAN RECOMBINANT)
     Dosage: 30 GRAM, Q4WEEKS
  3. HUMAN IMMUNOGLOBULIN G\HYALURONIDASE RECOMBINANT HUMAN [Suspect]
     Active Substance: HUMAN IMMUNOGLOBULIN G\HYALURONIDASE (HUMAN RECOMBINANT)
     Dosage: 30 GRAM, MONTHLY
  4. AZELASTINE [Concomitant]
     Active Substance: AZELASTINE
  5. GABAPENTIN [Concomitant]
     Active Substance: GABAPENTIN
  6. NORTRIPTYLINE HYDROCHLORIDE [Concomitant]
     Active Substance: NORTRIPTYLINE HYDROCHLORIDE
  7. ATORVASTATIN [Concomitant]
     Active Substance: ATORVASTATIN
  8. LOSARTAN [Concomitant]
     Active Substance: LOSARTAN
  9. SPIRONOLACTONE [Concomitant]
     Active Substance: SPIRONOLACTONE
  10. METOPROLOL TARTRATE [Concomitant]
     Active Substance: METOPROLOL TARTRATE
  11. BUMETANIDE [Concomitant]
     Active Substance: BUMETANIDE
  12. SYMBICORT [Concomitant]
     Active Substance: BUDESONIDE\FORMOTEROL FUMARATE DIHYDRATE
  13. ASPIRIN [Concomitant]
     Active Substance: ASPIRIN
  14. Omega [Concomitant]
  15. COENZYME Q10 [Concomitant]
     Active Substance: DIETARY SUPPLEMENT\UBIDECARENONE
  16. XOLAIR [Concomitant]
     Active Substance: OMALIZUMAB
  17. HERBALS\TURMERIC [Concomitant]
     Active Substance: HERBALS\TURMERIC
  18. VITAMIN C [Concomitant]
     Active Substance: ASCORBIC ACID
  19. ACETAMINOPHEN [Concomitant]
     Active Substance: ACETAMINOPHEN
  20. DIPHENHYDRAMINE [Concomitant]
     Active Substance: DIPHENHYDRAMINE
  21. LIDOCAINE HYDROCHLORIDE [Concomitant]
     Active Substance: LIDOCAINE HYDROCHLORIDE
  22. SODIUM CHLORIDE [Concomitant]
     Active Substance: SODIUM CHLORIDE
  23. EPINEPHRINE [Concomitant]
     Active Substance: EPINEPHRINE
  24. SINGULAIR [Concomitant]
     Active Substance: MONTELUKAST SODIUM
  25. CALCIUM [Concomitant]
     Active Substance: CALCIUM
  26. FLONASE [Concomitant]
     Active Substance: FLUTICASONE PROPIONATE
  27. POTASSIUM [Concomitant]
     Active Substance: POTASSIUM
  28. GLIMEPIRIDE [Concomitant]
     Active Substance: GLIMEPIRIDE
  29. ATORVASTATIN CALCIUM [Concomitant]
     Active Substance: ATORVASTATIN CALCIUM
  30. FLUTICASONE PROPIONATE [Concomitant]
     Active Substance: FLUTICASONE PROPIONATE
  31. AZELASTINE HYDROCHLORIDE [Concomitant]
     Active Substance: AZELASTINE HYDROCHLORIDE
  32. LOSARTAN POTASSIUM [Concomitant]
     Active Substance: LOSARTAN POTASSIUM
  33. CLINDAMYCIN HYDROCHLORIDE [Concomitant]
     Active Substance: CLINDAMYCIN HYDROCHLORIDE
  34. LORATADINE [Concomitant]
     Active Substance: LORATADINE
  35. DIPHENHYDRAMINE HYDROCHLORIDE [Concomitant]
     Active Substance: DIPHENHYDRAMINE HYDROCHLORIDE
  36. VITAMIN D [Concomitant]
     Active Substance: VITAMIN D NOS
  37. AMLODIPINE BESYLATE [Concomitant]
     Active Substance: AMLODIPINE BESYLATE
  38. ESCITALOPRAM OXALATE [Concomitant]
     Active Substance: ESCITALOPRAM OXALATE
  39. SPIRIVA RESPIMAT [Concomitant]
     Active Substance: TIOTROPIUM BROMIDE
  40. CHOLECALCIFEROL [Concomitant]
     Active Substance: CHOLECALCIFEROL
  41. BREO ELLIPTA [Concomitant]
     Active Substance: FLUTICASONE FUROATE\VILANTEROL TRIFENATATE
  42. ALBUTEROL SULFATE [Concomitant]
     Active Substance: ALBUTEROL SULFATE

REACTIONS (22)
  - Atrial fibrillation [Unknown]
  - Dehydration [Unknown]
  - Wrist fracture [Unknown]
  - Upper limb fracture [Unknown]
  - Pneumonia [Unknown]
  - Infection [Recovering/Resolving]
  - Urinary tract infection [Unknown]
  - Fall [Unknown]
  - COVID-19 [Unknown]
  - Hand fracture [Unknown]
  - Eye infection [Unknown]
  - Bronchitis [Unknown]
  - Infusion site discharge [Unknown]
  - Inappropriate schedule of product administration [Unknown]
  - Product intolerance [Unknown]
  - Product dose omission issue [Unknown]
  - Asthma [Unknown]
  - Infusion site haemorrhage [Unknown]
  - Infusion site bruising [Unknown]
  - Pruritus [Unknown]
  - Infusion site erythema [Unknown]
  - Swelling [Unknown]
